FAERS Safety Report 9258400 (Version 2)
Quarter: 2013Q2

REPORT INFORMATION
  Report Type: Spontaneous
  Country: GB (occurrence: GB)
  Receive Date: 20130426
  Receipt Date: 20130510
  Transmission Date: 20140414
  Serious: Yes (Hospitalization)
  Sender: FDA-Public Use
  Company Number: PHHY2013GB039494

PATIENT
  Age: 72 Year
  Sex: Female

DRUGS (11)
  1. CLARITHROMYCIN [Suspect]
     Indication: PLEURAL EFFUSION
     Dosage: 500 MG, Q12H
     Route: 048
     Dates: start: 20110607
  2. FENTANYL [Interacting]
     Indication: BONE PAIN
     Dosage: 87 UG/HR, Q72H
     Route: 062
  3. CANDESARTAN [Concomitant]
  4. DOXAZOSIN [Concomitant]
  5. ZOPICLONE [Concomitant]
  6. AMITRIPTYLINE [Concomitant]
  7. SEVELAMER [Concomitant]
  8. TAMOXIFEN [Concomitant]
  9. DEXAMETHASONE [Concomitant]
  10. PARACETAMOL [Concomitant]
  11. IBUPROFEN [Concomitant]

REACTIONS (12)
  - Respiratory arrest [Recovering/Resolving]
  - Respiratory failure [Recovered/Resolved]
  - Dyspnoea [Recovered/Resolved]
  - Restlessness [Recovering/Resolving]
  - Loss of consciousness [Recovered/Resolved]
  - Hypotension [Unknown]
  - Sedation [Recovering/Resolving]
  - Dysarthria [Unknown]
  - Muscle twitching [Recovering/Resolving]
  - Drug interaction [Unknown]
  - Fatigue [Recovering/Resolving]
  - Vomiting [Recovering/Resolving]
